FAERS Safety Report 5596022-8 (Version None)
Quarter: 2008Q1

REPORT INFORMATION
  Report Type: 
  Country: None (occurrence: None)
  Receive Date: 20080118
  Receipt Date: 20080108
  Transmission Date: 20080703
  Serious: Yes (Other)
  Sender: FDA-Public Use
  Company Number: BR-ABBOTT-07P-020-0431666-00

PATIENT
  Sex: Female
  Weight: 54 kg

DRUGS (1)
  1. DEPAKENE [Suspect]
     Indication: CONVULSION
     Route: 048
     Dates: start: 20010101, end: 20070901

REACTIONS (3)
  - ABORTION SPONTANEOUS [None]
  - HAEMORRHAGE [None]
  - PAIN [None]
